FAERS Safety Report 11187442 (Version 3)
Quarter: 2015Q3

REPORT INFORMATION
  Report Type: Spontaneous
  Country: US (occurrence: US)
  Receive Date: 20150615
  Receipt Date: 20150916
  Transmission Date: 20151125
  Serious: Yes (Hospitalization)
  Sender: FDA-Public Use
  Company Number: US-JNJFOC-20150604304

PATIENT
  Age: 67 Year
  Sex: Female

DRUGS (28)
  1. CARTIA XT [Suspect]
     Active Substance: DILTIAZEM HYDROCHLORIDE
     Indication: PRODUCT USED FOR UNKNOWN INDICATION
     Route: 065
  2. BACLOFEN. [Concomitant]
     Active Substance: BACLOFEN
     Route: 065
  3. AMOXICILLIN. [Concomitant]
     Active Substance: AMOXICILLIN
     Route: 065
  4. AUGMENTIN [Concomitant]
     Active Substance: AMOXICILLIN\CLAVULANATE POTASSIUM
     Route: 065
  5. METOPROLOL [Concomitant]
     Active Substance: METOPROLOL
     Route: 065
  6. XARELTO [Suspect]
     Active Substance: RIVAROXABAN
     Indication: THROMBOSIS PROPHYLAXIS
     Route: 048
     Dates: start: 201401, end: 20140527
  7. XARELTO [Suspect]
     Active Substance: RIVAROXABAN
     Indication: CEREBROVASCULAR ACCIDENT PROPHYLAXIS
     Route: 048
     Dates: start: 201401, end: 20140527
  8. COUMADIN [Suspect]
     Active Substance: WARFARIN SODIUM
     Indication: ANTICOAGULANT THERAPY
     Route: 065
     Dates: start: 2014, end: 2015
  9. LOVASTATIN. [Concomitant]
     Active Substance: LOVASTATIN
     Route: 065
  10. PROTONIX [Concomitant]
     Active Substance: PANTOPRAZOLE SODIUM
     Route: 065
  11. DOXEPIN [Concomitant]
     Active Substance: DOXEPIN
     Route: 065
  12. FERROUS SULFATE [Concomitant]
     Active Substance: FERROUS SULFATE\FERROUS SULFATE, DRIED
     Route: 065
  13. XARELTO [Suspect]
     Active Substance: RIVAROXABAN
     Indication: CEREBROVASCULAR ACCIDENT PROPHYLAXIS
     Route: 048
     Dates: start: 20131120, end: 20140527
  14. BUMEX [Concomitant]
     Active Substance: BUMETANIDE
     Route: 065
  15. ATIVAN [Concomitant]
     Active Substance: LORAZEPAM
     Route: 065
  16. SLIDING SCALE INSULIN [Concomitant]
     Active Substance: INSULIN NOS
     Route: 065
  17. CLARITHROMYCIN. [Concomitant]
     Active Substance: CLARITHROMYCIN
     Route: 065
  18. DUONEBS [Concomitant]
     Route: 065
  19. OXYCODONE [Concomitant]
     Active Substance: OXYCODONE
     Route: 065
  20. XARELTO [Suspect]
     Active Substance: RIVAROXABAN
     Indication: ATRIAL FIBRILLATION
     Route: 048
     Dates: start: 201401, end: 20140527
  21. BUSPIRONE [Concomitant]
     Active Substance: BUSPIRONE HYDROCHLORIDE
     Route: 065
  22. LASIX [Concomitant]
     Active Substance: FUROSEMIDE
     Route: 065
  23. MUCINEX [Concomitant]
     Active Substance: GUAIFENESIN
     Route: 065
  24. POTASSIUM CHLORIDE. [Concomitant]
     Active Substance: POTASSIUM CHLORIDE
     Route: 065
  25. XARELTO [Suspect]
     Active Substance: RIVAROXABAN
     Indication: ATRIAL FIBRILLATION
     Route: 048
     Dates: start: 20131120, end: 20140527
  26. XARELTO [Suspect]
     Active Substance: RIVAROXABAN
     Indication: THROMBOSIS PROPHYLAXIS
     Route: 048
     Dates: start: 20131120, end: 20140527
  27. AMBIEN [Concomitant]
     Active Substance: ZOLPIDEM TARTRATE
     Route: 065
  28. ROPINIROLE. [Concomitant]
     Active Substance: ROPINIROLE
     Route: 065

REACTIONS (3)
  - Gastrointestinal polyp haemorrhage [Unknown]
  - Haematuria [Unknown]
  - Lower gastrointestinal haemorrhage [Unknown]

NARRATIVE: CASE EVENT DATE: 20140517
